FAERS Safety Report 20905740 (Version 1)
Quarter: 2022Q2

REPORT INFORMATION
  Report Type: Report from Study
  Country: DE (occurrence: DE)
  Receive Date: 20220602
  Receipt Date: 20220602
  Transmission Date: 20220721
  Serious: Yes (Hospitalization)
  Sender: FDA-Public Use
  Company Number: DE-CELGENE-DEU-20171106831

PATIENT
  Age: 75 Year
  Sex: Male
  Weight: 96 kg

DRUGS (13)
  1. DEXAMETHASONE [Suspect]
     Active Substance: DEXAMETHASONE
     Indication: Plasma cell myeloma
     Route: 048
     Dates: start: 20170706, end: 20171006
  2. DEXAMETHASONE [Suspect]
     Active Substance: DEXAMETHASONE
     Route: 048
     Dates: start: 20170925, end: 20171006
  3. REVLIMID [Suspect]
     Active Substance: LENALIDOMIDE
     Indication: Plasma cell myeloma
     Route: 048
     Dates: start: 20170925, end: 20171006
  4. REVLIMID [Suspect]
     Active Substance: LENALIDOMIDE
     Route: 048
     Dates: start: 20170727, end: 20170823
  5. OMEDOC [Concomitant]
     Indication: Prophylaxis
     Dosage: 20 MILLIGRAM
     Route: 048
     Dates: start: 20170404
  6. ALLOPURINOL [Concomitant]
     Active Substance: ALLOPURINOL
     Indication: Blood uric acid
     Dosage: 200 MILLIGRAM
     Route: 048
  7. PAMIDRONATE [Concomitant]
     Active Substance: PAMIDRONATE DISODIUM
     Indication: Prophylaxis
     Dosage: 2 MILLIGRAM
     Route: 041
     Dates: start: 20170518
  8. MOVICOL [Concomitant]
     Active Substance: POLYETHYLENE GLYCOL 3350\POTASSIUM CHLORIDE\SODIUM BICARBONATE\SODIUM CHLORIDE
     Indication: Prophylaxis
     Dosage: 27.62 MILLIGRAM
     Route: 048
     Dates: start: 20170426
  9. METAMIZOLE [Concomitant]
     Active Substance: METAMIZOLE
     Indication: Bone pain
     Dosage: 2000 MILLIGRAM
     Route: 048
  10. CHOLECALCIFEROL [Concomitant]
     Active Substance: CHOLECALCIFEROL
     Indication: Prophylaxis
     Route: 048
     Dates: start: 20170515
  11. OXYCODONE [Concomitant]
     Active Substance: OXYCODONE
     Indication: Bone pain
     Dosage: 20 MILLIGRAM
     Route: 048
     Dates: start: 20170426
  12. ASPIRIN [Concomitant]
     Active Substance: ASPIRIN
     Indication: Prophylaxis
     Dosage: 100 MILLIGRAM
     Route: 048
  13. VALSARTAN [Concomitant]
     Active Substance: VALSARTAN
     Indication: Hypertension
     Dosage: 160 MILLIGRAM
     Route: 048

REACTIONS (3)
  - Thrombocytosis [Not Recovered/Not Resolved]
  - Acute kidney injury [Recovered/Resolved]
  - Venous thrombosis [Not Recovered/Not Resolved]

NARRATIVE: CASE EVENT DATE: 20170905
